FAERS Safety Report 6441865-1 (Version None)
Quarter: 2009Q4

REPORT INFORMATION
  Report Type: 
  Country: None (occurrence: None)
  Receive Date: 20091116
  Receipt Date: 20091030
  Transmission Date: 20100525
  Serious: Yes (Hospitalization)
  Sender: FDA-Public Use
  Company Number: IE-MEDIMMUNE-MEDI-0009430

PATIENT
  Sex: Male

DRUGS (1)
  1. SYNAGIS [Suspect]
     Dates: start: 20091028, end: 20091028

REACTIONS (4)
  - MALAISE [None]
  - SKIN DISCOLOURATION [None]
  - VIRAL INFECTION [None]
  - VOMITING [None]
